FAERS Safety Report 23904439 (Version 1)
Quarter: 2024Q2

REPORT INFORMATION
  Report Type: Report from Study
  Country: US (occurrence: US)
  Receive Date: 20240527
  Receipt Date: 20240527
  Transmission Date: 20240716
  Serious: Yes (Other)
  Sender: FDA-Public Use
  Company Number: US-GILEAD-2024-0674101

PATIENT
  Age: 10 Year
  Sex: Female

DRUGS (3)
  1. AMBRISENTAN [Suspect]
     Active Substance: AMBRISENTAN
     Indication: Product used for unknown indication
     Dosage: 10 MG, QD
     Route: 065
  2. UPTRAVI [Suspect]
     Active Substance: SELEXIPAG
     Indication: Product used for unknown indication
     Dosage: CURRENTLY TAKES 1000MCG IN AM AND 1200MCG IN PM
     Route: 065
  3. TADALAFIL [Concomitant]
     Active Substance: TADALAFIL

REACTIONS (5)
  - Syncope [Unknown]
  - Pallor [Unknown]
  - Asthenia [Unknown]
  - Abdominal discomfort [Unknown]
  - Off label use [Not Recovered/Not Resolved]

NARRATIVE: CASE EVENT DATE: 20240519
